FAERS Safety Report 8801487 (Version 1)
Quarter: 2012Q4

REPORT INFORMATION
  Report Type: 
  Country: MX (occurrence: MX)
  Receive Date: 20120921
  Receipt Date: 20120921
  Transmission Date: 20130627
  Serious: Yes (Death)
  Sender: FDA-Public Use
  Company Number: MX-UCBSA-066272

PATIENT
  Age: 27 Year
  Sex: Male
  Weight: 66 kg

DRUGS (1)
  1. VIMPAT [Suspect]
     Indication: EPILEPSY
     Route: 048
     Dates: start: 20120526

REACTIONS (1)
  - Death [Fatal]
